FAERS Safety Report 7677746-5 (Version None)
Quarter: 2011Q3

REPORT INFORMATION
  Report Type: 
  Country: None (occurrence: None)
  Receive Date: 20110811
  Receipt Date: 20110805
  Transmission Date: 20111222
  Serious: Yes (Hospitalization)
  Sender: FDA-Public Use
  Company Number: MX-PFIZER INC-2011181273

PATIENT
  Age: 42 Year
  Sex: Male

DRUGS (1)
  1. LINEZOLID [Suspect]
     Dosage: UNK
     Route: 042
     Dates: start: 20110523

REACTIONS (1)
  - TREMOR [None]
